FAERS Safety Report 5353277-2 (Version None)
Quarter: 2007Q2

REPORT INFORMATION
  Report Type: 
  Country: None (occurrence: None)
  Receive Date: 20070518
  Receipt Date: 20070205
  Transmission Date: 20071010
  Serious: No
  Sender: FDA-Public Use
  Company Number: TPA2007A00344

PATIENT
  Age: 55 Year
  Sex: Male
  Weight: 99.7913 kg

DRUGS (18)
  1. ROZEREM [Suspect]
     Indication: CIRCADIAN RHYTHM SLEEP DISORDER
     Dosage: SEE IMAGE
     Route: 048
     Dates: start: 20070123
  2. ALLOPURINOL [Concomitant]
  3. FUROSEMIDE [Concomitant]
  4. HYDROXYCHLOROQUINE SULFATE [Concomitant]
  5. LEVOTHYROXINE SODIUM [Concomitant]
  6. OMEPRAZOLE [Concomitant]
  7. ACETAMINOPHEN [Concomitant]
  8. GABAPENTIN [Concomitant]
  9. LIDOCAINE 5% (LIDOCAINE) (POULTICE OR PATCH) [Concomitant]
  10. OXYCODONE HCL [Concomitant]
  11. ALPRAZOLAM [Concomitant]
  12. BUSPIRONE HCL [Concomitant]
  13. LEXAPRO [Concomitant]
  14. ZOLPIDEM TARTRATE [Concomitant]
  15. MULTIVITAMIN [Concomitant]
  16. COLACE (DOCUSATE SODIUM) [Concomitant]
  17. VALSARTAN [Concomitant]
  18. METOPROLOL TARTRATE [Concomitant]

REACTIONS (5)
  - DIZZINESS [None]
  - HEART RATE ABNORMAL [None]
  - HYPOTENSION [None]
  - ORTHOSTATIC HYPOTENSION [None]
  - UNDERDOSE [None]
